FAERS Safety Report 8440331-1 (Version None)
Quarter: 2012Q2

REPORT INFORMATION
  Report Type: 
  Country: None (occurrence: None)
  Receive Date: 20120615
  Receipt Date: 20090302
  Transmission Date: 20120825
  Serious: Yes (Other)
  Sender: FDA-Public Use
  Company Number: TR-ROCHE-1078652

PATIENT
  Sex: Female

DRUGS (1)
  1. XOLAIR [Suspect]
     Indication: ASTHMA
     Route: 058
     Dates: start: 20080506

REACTIONS (4)
  - WHEEZING [None]
  - ASTHMA [None]
  - GENERAL PHYSICAL HEALTH DETERIORATION [None]
  - DYSPNOEA [None]
